FAERS Safety Report 21031982 (Version 1)
Quarter: 2022Q3

REPORT INFORMATION
  Report Type: Spontaneous
  Country: US (occurrence: US)
  Receive Date: 20220701
  Receipt Date: 20220701
  Transmission Date: 20221027
  Serious: No
  Sender: FDA-Public Use
  Company Number: US-009507513-2206USA000515

PATIENT
  Age: 21 Month
  Sex: Male

DRUGS (6)
  1. TEMODAR [Suspect]
     Active Substance: TEMOZOLOMIDE
     Indication: Clear cell sarcoma of the kidney
     Dosage: 100 MG/M2 PER CYCLE FOR 8 CYCLES
     Route: 048
  2. TEMODAR [Suspect]
     Active Substance: TEMOZOLOMIDE
     Indication: Metastases to central nervous system
  3. VINCRISTINE [Concomitant]
     Active Substance: VINCRISTINE
     Indication: Metastases to central nervous system
     Dosage: 1.5 MILLIGRAM/SQ. METER PER CYCLE FOR 8 CYCLES
  4. VINCRISTINE [Concomitant]
     Active Substance: VINCRISTINE
     Indication: Clear cell sarcoma of the kidney
  5. IRINOTECAN [Concomitant]
     Active Substance: IRINOTECAN
     Indication: Metastases to central nervous system
     Dosage: 50 MILLIGRAM/SQ. METER, PER CYCLE FOR 8 CYCLES
  6. IRINOTECAN [Concomitant]
     Active Substance: IRINOTECAN
     Indication: Clear cell sarcoma of the kidney
     Dosage: 37.5 MILLIGRAM/SQ. METER, PER CYCLE FOR 8 CYCLES

REACTIONS (1)
  - Product use in unapproved indication [Unknown]
